FAERS Safety Report 4458954-3 (Version None)
Quarter: 2004Q3

REPORT INFORMATION
  Report Type: 
  Country: None (occurrence: None)
  Receive Date: 20040923
  Receipt Date: 20040923
  Transmission Date: 20050211
  Serious: No
  Sender: FDA-Public Use
  Company Number: None

PATIENT

DRUGS (2)
  1. ESTRADIOL [Suspect]
     Indication: MENOPAUSE
     Dosage: ONE MG PO QHS [FOR YEARS]
  2. ESTRADIOL [Suspect]
     Indication: OSTEOPOROSIS
     Dosage: ONE MG PO QHS [FOR YEARS]

REACTIONS (1)
  - PHARMACEUTICAL PRODUCT COMPLAINT [None]
